FAERS Safety Report 25886663 (Version 4)
Quarter: 2025Q4

REPORT INFORMATION
  Report Type: Spontaneous
  Country: GB (occurrence: GB)
  Receive Date: 20251006
  Receipt Date: 20251119
  Transmission Date: 20260117
  Serious: Yes (Hospitalization)
  Sender: MYLAN
  Company Number: GB-MYLANLABS-2025M1080699

PATIENT
  Sex: Male

DRUGS (8)
  1. CLOZARIL [Suspect]
     Active Substance: CLOZAPINE
     Indication: Schizophrenia
     Dosage: UNK, BID (100 MG IN THE MORNING AND 300 MG AT NIGHT TIME)
     Dates: start: 20241022, end: 20250917
  2. CLOZARIL [Suspect]
     Active Substance: CLOZAPINE
     Dosage: UNK, BID (100 MG IN THE MORNING AND 275 MG AT NIGHT TIME)
  3. LORAZEPAM [Concomitant]
     Active Substance: LORAZEPAM
     Dosage: 1 MILLIGRAM, PRN (ORDER WITH NO DEFINED FREQUENCY)
  4. LACTULOSE [Concomitant]
     Active Substance: LACTULOSE
     Dosage: 15 MILLILITER
  5. ENOXAPARIN SODIUM [Concomitant]
     Active Substance: ENOXAPARIN SODIUM
     Dosage: 80 MILLIGRAM (80 MG (8,000 UNITS) IN 0.8 ML INJECTION)
  6. OMEPRAZOLE [Concomitant]
     Active Substance: OMEPRAZOLE
     Dosage: 20 MILLIGRAM
  7. POLYETHYLENE GLYCOL 3350\POTASSIUM CHLORIDE\SODIUM BICARBONATE\SODIUM [Concomitant]
     Active Substance: POLYETHYLENE GLYCOL 3350\POTASSIUM CHLORIDE\SODIUM BICARBONATE\SODIUM CHLORIDE
     Dosage: UNK
  8. NICOTINE [Concomitant]
     Active Substance: NICOTINE
     Dosage: UNK (15 MG/16 HRS PATCH)

REACTIONS (4)
  - Surgery [Unknown]
  - Antipsychotic drug level increased [Unknown]
  - Ankle fracture [Unknown]
  - Fall [Unknown]

NARRATIVE: CASE EVENT DATE: 20250901
